FAERS Safety Report 11617594 (Version 3)
Quarter: 2015Q4

REPORT INFORMATION
  Report Type: Spontaneous
  Country: US (occurrence: US)
  Receive Date: 20151009
  Receipt Date: 20151120
  Transmission Date: 20160304
  Serious: Yes (Death)
  Sender: FDA-Public Use
  Company Number: US-TEVA-600196USA

PATIENT
  Age: 60 Year
  Sex: Female

DRUGS (1)
  1. PROAIR HFA [Suspect]
     Active Substance: ALBUTEROL SULFATE
     Route: 055

REACTIONS (3)
  - Device malfunction [Unknown]
  - Cardiac disorder [Fatal]
  - Lung disorder [Fatal]

NARRATIVE: CASE EVENT DATE: 20150828
